FAERS Safety Report 7701834-8 (Version None)
Quarter: 2011Q3

REPORT INFORMATION
  Report Type: 
  Country: None (occurrence: None)
  Receive Date: 20110822
  Receipt Date: 20110818
  Transmission Date: 20111222
  Serious: Yes (Death)
  Sender: FDA-Public Use
  Company Number: NZ-ASTRAZENECA-2011SE49770

PATIENT
  Age: 35 Year

DRUGS (1)
  1. PROPOFOL [Suspect]
     Route: 042

REACTIONS (1)
  - OVERDOSE [None]
